FAERS Safety Report 23801000 (Version 1)
Quarter: 2024Q2

REPORT INFORMATION
  Report Type: Spontaneous
  Country: CA (occurrence: CA)
  Receive Date: 20240430
  Receipt Date: 20240430
  Transmission Date: 20240716
  Serious: Yes (Congenital Anomaly, Other)
  Sender: FDA-Public Use
  Company Number: CA-TEVA-2020-CA-1799694

PATIENT
  Age: 66 Year
  Sex: Male
  Weight: 70 kg

DRUGS (154)
  1. PREDNISONE [Suspect]
     Active Substance: PREDNISONE
     Indication: Asthma
     Route: 048
  2. OMALIZUMAB [Suspect]
     Active Substance: OMALIZUMAB
     Indication: Product used for unknown indication
     Route: 065
  3. OMALIZUMAB [Suspect]
     Active Substance: OMALIZUMAB
     Indication: Product used for unknown indication
     Route: 065
  4. OMALIZUMAB [Suspect]
     Active Substance: OMALIZUMAB
     Indication: Product used for unknown indication
     Route: 048
  5. OMALIZUMAB [Suspect]
     Active Substance: OMALIZUMAB
     Indication: Product used for unknown indication
     Route: 048
  6. OMALIZUMAB [Suspect]
     Active Substance: OMALIZUMAB
     Indication: Product used for unknown indication
     Route: 048
  7. OMALIZUMAB [Suspect]
     Active Substance: OMALIZUMAB
     Indication: Product used for unknown indication
     Route: 048
  8. OMALIZUMAB [Suspect]
     Active Substance: OMALIZUMAB
     Indication: Product used for unknown indication
     Route: 048
  9. OMALIZUMAB [Suspect]
     Active Substance: OMALIZUMAB
     Indication: Product used for unknown indication
     Route: 048
  10. OMALIZUMAB [Suspect]
     Active Substance: OMALIZUMAB
     Indication: Product used for unknown indication
     Route: 048
  11. OMALIZUMAB [Suspect]
     Active Substance: OMALIZUMAB
     Indication: Product used for unknown indication
     Route: 048
  12. PREVNAR 13 [Suspect]
     Active Substance: STREPTOCOCCUS PNEUMONIAE TYPE 1 CAPSULAR POLYSACCHARIDE DIPHTHERIA CRM197 PROTEIN CONJUGATE ANTIGEN\
     Indication: Product used for unknown indication
     Dosage: DOSAGE TEXT: SUSPENSION INTRAMUSCULAR
     Route: 030
  13. PREVNAR 13 [Suspect]
     Active Substance: STREPTOCOCCUS PNEUMONIAE TYPE 1 CAPSULAR POLYSACCHARIDE DIPHTHERIA CRM197 PROTEIN CONJUGATE ANTIGEN\
     Indication: Product used for unknown indication
     Route: 030
  14. PREVNAR 13 [Suspect]
     Active Substance: STREPTOCOCCUS PNEUMONIAE TYPE 1 CAPSULAR POLYSACCHARIDE DIPHTHERIA CRM197 PROTEIN CONJUGATE ANTIGEN\
     Indication: Product used for unknown indication
     Route: 030
  15. PREVNAR 13 [Suspect]
     Active Substance: STREPTOCOCCUS PNEUMONIAE TYPE 1 CAPSULAR POLYSACCHARIDE DIPHTHERIA CRM197 PROTEIN CONJUGATE ANTIGEN\
     Indication: Product used for unknown indication
     Route: 030
  16. PREVNAR 13 [Suspect]
     Active Substance: STREPTOCOCCUS PNEUMONIAE TYPE 1 CAPSULAR POLYSACCHARIDE DIPHTHERIA CRM197 PROTEIN CONJUGATE ANTIGEN\
     Indication: Product used for unknown indication
     Route: 030
  17. PREVNAR 13 [Suspect]
     Active Substance: STREPTOCOCCUS PNEUMONIAE TYPE 1 CAPSULAR POLYSACCHARIDE DIPHTHERIA CRM197 PROTEIN CONJUGATE ANTIGEN\
     Indication: Product used for unknown indication
     Route: 030
  18. PREVNAR 13 [Suspect]
     Active Substance: STREPTOCOCCUS PNEUMONIAE TYPE 1 CAPSULAR POLYSACCHARIDE DIPHTHERIA CRM197 PROTEIN CONJUGATE ANTIGEN\
     Indication: Product used for unknown indication
     Route: 030
  19. PREVNAR 13 [Suspect]
     Active Substance: STREPTOCOCCUS PNEUMONIAE TYPE 1 CAPSULAR POLYSACCHARIDE DIPHTHERIA CRM197 PROTEIN CONJUGATE ANTIGEN\
     Indication: Product used for unknown indication
     Route: 030
  20. PREVNAR 13 [Suspect]
     Active Substance: STREPTOCOCCUS PNEUMONIAE TYPE 1 CAPSULAR POLYSACCHARIDE DIPHTHERIA CRM197 PROTEIN CONJUGATE ANTIGEN\
     Indication: Product used for unknown indication
     Route: 030
  21. PREVNAR 13 [Suspect]
     Active Substance: STREPTOCOCCUS PNEUMONIAE TYPE 1 CAPSULAR POLYSACCHARIDE DIPHTHERIA CRM197 PROTEIN CONJUGATE ANTIGEN\
     Indication: Product used for unknown indication
     Route: 030
  22. PREVNAR 13 [Suspect]
     Active Substance: STREPTOCOCCUS PNEUMONIAE TYPE 1 CAPSULAR POLYSACCHARIDE DIPHTHERIA CRM197 PROTEIN CONJUGATE ANTIGEN\
     Indication: Product used for unknown indication
     Route: 030
  23. PREVNAR 13 [Suspect]
     Active Substance: STREPTOCOCCUS PNEUMONIAE TYPE 1 CAPSULAR POLYSACCHARIDE DIPHTHERIA CRM197 PROTEIN CONJUGATE ANTIGEN\
     Indication: Product used for unknown indication
     Route: 030
  24. PREVNAR 13 [Suspect]
     Active Substance: STREPTOCOCCUS PNEUMONIAE TYPE 1 CAPSULAR POLYSACCHARIDE DIPHTHERIA CRM197 PROTEIN CONJUGATE ANTIGEN\
     Indication: Product used for unknown indication
     Route: 030
  25. PREVNAR 13 [Suspect]
     Active Substance: STREPTOCOCCUS PNEUMONIAE TYPE 1 CAPSULAR POLYSACCHARIDE DIPHTHERIA CRM197 PROTEIN CONJUGATE ANTIGEN\
     Indication: Product used for unknown indication
     Route: 030
  26. PREVNAR 13 [Suspect]
     Active Substance: STREPTOCOCCUS PNEUMONIAE TYPE 1 CAPSULAR POLYSACCHARIDE DIPHTHERIA CRM197 PROTEIN CONJUGATE ANTIGEN\
     Indication: Product used for unknown indication
     Route: 030
  27. PREVNAR 13 [Suspect]
     Active Substance: STREPTOCOCCUS PNEUMONIAE TYPE 1 CAPSULAR POLYSACCHARIDE DIPHTHERIA CRM197 PROTEIN CONJUGATE ANTIGEN\
     Indication: Product used for unknown indication
     Route: 030
  28. PREVNAR 13 [Suspect]
     Active Substance: STREPTOCOCCUS PNEUMONIAE TYPE 1 CAPSULAR POLYSACCHARIDE DIPHTHERIA CRM197 PROTEIN CONJUGATE ANTIGEN\
     Indication: Product used for unknown indication
     Route: 030
  29. PREVNAR 13 [Suspect]
     Active Substance: STREPTOCOCCUS PNEUMONIAE TYPE 1 CAPSULAR POLYSACCHARIDE DIPHTHERIA CRM197 PROTEIN CONJUGATE ANTIGEN\
     Indication: Product used for unknown indication
     Route: 030
  30. PREVNAR 13 [Suspect]
     Active Substance: STREPTOCOCCUS PNEUMONIAE TYPE 1 CAPSULAR POLYSACCHARIDE DIPHTHERIA CRM197 PROTEIN CONJUGATE ANTIGEN\
     Indication: Product used for unknown indication
     Route: 030
  31. PREVNAR 13 [Suspect]
     Active Substance: STREPTOCOCCUS PNEUMONIAE TYPE 1 CAPSULAR POLYSACCHARIDE DIPHTHERIA CRM197 PROTEIN CONJUGATE ANTIGEN\
     Indication: Product used for unknown indication
     Route: 030
  32. UMECLIDINIUM BROMIDE\VILANTEROL TRIFENATATE [Suspect]
     Active Substance: UMECLIDINIUM BROMIDE\VILANTEROL TRIFENATATE
     Indication: Product used for unknown indication
     Route: 065
  33. ALBUTEROL SULFATE [Suspect]
     Active Substance: ALBUTEROL SULFATE
     Indication: Product used for unknown indication
     Dosage: DOSAGE TEXT: 100 MICROGRAM
     Route: 055
  34. BUDESONIDE\FORMOTEROL [Suspect]
     Active Substance: BUDESONIDE\FORMOTEROL
     Indication: Product used for unknown indication
     Route: 055
  35. ELIQUIS [Suspect]
     Active Substance: APIXABAN
     Indication: Product used for unknown indication
     Route: 065
  36. ELIQUIS [Suspect]
     Active Substance: APIXABAN
     Indication: Product used for unknown indication
     Route: 065
  37. ELIQUIS [Suspect]
     Active Substance: APIXABAN
     Indication: Product used for unknown indication
     Route: 065
  38. ELIQUIS [Suspect]
     Active Substance: APIXABAN
     Indication: Product used for unknown indication
     Route: 065
  39. ELIQUIS [Suspect]
     Active Substance: APIXABAN
     Indication: Product used for unknown indication
     Route: 065
  40. ELIQUIS [Suspect]
     Active Substance: APIXABAN
     Indication: Product used for unknown indication
     Route: 065
  41. ELIQUIS [Suspect]
     Active Substance: APIXABAN
     Indication: Product used for unknown indication
     Route: 065
  42. EPINEPHRINE HYDROCHLORIDE [Suspect]
     Active Substance: EPINEPHRINE HYDROCHLORIDE
     Indication: Anaphylactic reaction
     Route: 065
  43. EPINEPHRINE BITARTRATE [Suspect]
     Active Substance: EPINEPHRINE BITARTRATE
     Indication: Anaphylactic reaction
     Route: 065
  44. EPINEPHRINE HYDROCHLORIDE [Suspect]
     Active Substance: EPINEPHRINE HYDROCHLORIDE
     Indication: Anaphylactic reaction
     Route: 065
  45. EPINEPHRINE BITARTRATE [Suspect]
     Active Substance: EPINEPHRINE BITARTRATE
     Indication: Anaphylactic reaction
     Route: 065
  46. EPINEPHRINE HYDROCHLORIDE [Suspect]
     Active Substance: EPINEPHRINE HYDROCHLORIDE
     Indication: Anaphylactic reaction
     Route: 065
  47. EPINEPHRINE BITARTRATE [Suspect]
     Active Substance: EPINEPHRINE BITARTRATE
     Indication: Anaphylactic reaction
     Route: 065
  48. EPINEPHRINE HYDROCHLORIDE [Suspect]
     Active Substance: EPINEPHRINE HYDROCHLORIDE
     Indication: Anaphylactic reaction
     Route: 065
  49. EPINEPHRINE BITARTRATE [Suspect]
     Active Substance: EPINEPHRINE BITARTRATE
     Indication: Anaphylactic reaction
     Route: 065
  50. EPINEPHRINE HYDROCHLORIDE [Suspect]
     Active Substance: EPINEPHRINE HYDROCHLORIDE
     Indication: Anaphylactic reaction
     Route: 065
  51. EPINEPHRINE BITARTRATE [Suspect]
     Active Substance: EPINEPHRINE BITARTRATE
     Indication: Anaphylactic reaction
     Route: 065
  52. EPINEPHRINE HYDROCHLORIDE [Suspect]
     Active Substance: EPINEPHRINE HYDROCHLORIDE
     Indication: Anaphylactic reaction
     Route: 065
  53. EPINEPHRINE BITARTRATE [Suspect]
     Active Substance: EPINEPHRINE BITARTRATE
     Indication: Anaphylactic reaction
     Route: 065
  54. EPINEPHRINE HYDROCHLORIDE [Suspect]
     Active Substance: EPINEPHRINE HYDROCHLORIDE
     Indication: Anaphylactic reaction
     Route: 065
  55. EPINEPHRINE BITARTRATE [Suspect]
     Active Substance: EPINEPHRINE BITARTRATE
     Indication: Anaphylactic reaction
     Route: 065
  56. EPINEPHRINE HYDROCHLORIDE [Suspect]
     Active Substance: EPINEPHRINE HYDROCHLORIDE
     Indication: Anaphylactic reaction
     Route: 065
  57. EPINEPHRINE BITARTRATE [Suspect]
     Active Substance: EPINEPHRINE BITARTRATE
     Indication: Anaphylactic reaction
     Route: 065
  58. EPINEPHRINE HYDROCHLORIDE [Suspect]
     Active Substance: EPINEPHRINE HYDROCHLORIDE
     Indication: Anaphylactic reaction
     Route: 065
  59. EPINEPHRINE BITARTRATE [Suspect]
     Active Substance: EPINEPHRINE BITARTRATE
     Indication: Anaphylactic reaction
     Route: 065
  60. EPINEPHRINE HYDROCHLORIDE [Suspect]
     Active Substance: EPINEPHRINE HYDROCHLORIDE
     Indication: Anaphylactic reaction
     Route: 065
  61. EPINEPHRINE BITARTRATE [Suspect]
     Active Substance: EPINEPHRINE BITARTRATE
     Indication: Anaphylactic reaction
     Route: 065
  62. EPINEPHRINE HYDROCHLORIDE [Suspect]
     Active Substance: EPINEPHRINE HYDROCHLORIDE
     Indication: Anaphylactic reaction
     Route: 065
  63. EPINEPHRINE BITARTRATE [Suspect]
     Active Substance: EPINEPHRINE BITARTRATE
     Indication: Anaphylactic reaction
     Route: 065
  64. EPINEPHRINE HYDROCHLORIDE [Suspect]
     Active Substance: EPINEPHRINE HYDROCHLORIDE
     Indication: Anaphylactic reaction
     Route: 065
  65. EPINEPHRINE BITARTRATE [Suspect]
     Active Substance: EPINEPHRINE BITARTRATE
     Indication: Anaphylactic reaction
     Route: 065
  66. EPINEPHRINE HYDROCHLORIDE [Suspect]
     Active Substance: EPINEPHRINE HYDROCHLORIDE
     Indication: Anaphylactic reaction
     Route: 065
  67. EPINEPHRINE BITARTRATE [Suspect]
     Active Substance: EPINEPHRINE BITARTRATE
     Indication: Anaphylactic reaction
     Route: 065
  68. EPINEPHRINE HYDROCHLORIDE [Suspect]
     Active Substance: EPINEPHRINE HYDROCHLORIDE
     Indication: Anaphylactic reaction
     Route: 065
  69. EPINEPHRINE BITARTRATE [Suspect]
     Active Substance: EPINEPHRINE BITARTRATE
     Indication: Anaphylactic reaction
     Route: 065
  70. EPINEPHRINE HYDROCHLORIDE [Suspect]
     Active Substance: EPINEPHRINE HYDROCHLORIDE
     Indication: Anaphylactic reaction
     Route: 065
  71. EPINEPHRINE BITARTRATE [Suspect]
     Active Substance: EPINEPHRINE BITARTRATE
     Indication: Anaphylactic reaction
     Route: 065
  72. EPINEPHRINE HYDROCHLORIDE [Suspect]
     Active Substance: EPINEPHRINE HYDROCHLORIDE
     Indication: Anaphylactic reaction
     Route: 065
  73. EPINEPHRINE BITARTRATE [Suspect]
     Active Substance: EPINEPHRINE BITARTRATE
     Indication: Anaphylactic reaction
     Route: 065
  74. EPINEPHRINE HYDROCHLORIDE [Suspect]
     Active Substance: EPINEPHRINE HYDROCHLORIDE
     Indication: Anaphylactic reaction
     Route: 065
  75. EPINEPHRINE BITARTRATE [Suspect]
     Active Substance: EPINEPHRINE BITARTRATE
     Indication: Anaphylactic reaction
     Route: 065
  76. EPINEPHRINE HYDROCHLORIDE [Suspect]
     Active Substance: EPINEPHRINE HYDROCHLORIDE
     Indication: Anaphylactic reaction
     Route: 065
  77. EPINEPHRINE BITARTRATE [Suspect]
     Active Substance: EPINEPHRINE BITARTRATE
     Indication: Anaphylactic reaction
     Route: 065
  78. EPINEPHRINE HYDROCHLORIDE [Suspect]
     Active Substance: EPINEPHRINE HYDROCHLORIDE
     Indication: Anaphylactic reaction
     Route: 065
  79. EPINEPHRINE BITARTRATE [Suspect]
     Active Substance: EPINEPHRINE BITARTRATE
     Indication: Anaphylactic reaction
     Route: 065
  80. EPINEPHRINE HYDROCHLORIDE [Suspect]
     Active Substance: EPINEPHRINE HYDROCHLORIDE
     Indication: Anaphylactic reaction
     Route: 065
  81. EPINEPHRINE BITARTRATE [Suspect]
     Active Substance: EPINEPHRINE BITARTRATE
     Indication: Anaphylactic reaction
     Route: 065
  82. BUDESONIDE [Suspect]
     Active Substance: BUDESONIDE
     Route: 065
  83. BUDESONIDE [Suspect]
     Active Substance: BUDESONIDE
     Route: 065
  84. BUDESONIDE [Suspect]
     Active Substance: BUDESONIDE
     Route: 065
  85. BUDESONIDE [Suspect]
     Active Substance: BUDESONIDE
     Route: 065
  86. BUDESONIDE [Suspect]
     Active Substance: BUDESONIDE
     Route: 065
  87. BUDESONIDE [Suspect]
     Active Substance: BUDESONIDE
     Route: 065
  88. BUDESONIDE [Suspect]
     Active Substance: BUDESONIDE
     Route: 065
  89. BUDESONIDE [Suspect]
     Active Substance: BUDESONIDE
     Route: 065
  90. BUDESONIDE [Suspect]
     Active Substance: BUDESONIDE
     Route: 065
  91. BUDESONIDE [Suspect]
     Active Substance: BUDESONIDE
     Route: 065
  92. BUDESONIDE [Suspect]
     Active Substance: BUDESONIDE
     Route: 065
  93. BUDESONIDE [Suspect]
     Active Substance: BUDESONIDE
     Route: 065
  94. BUDESONIDE [Suspect]
     Active Substance: BUDESONIDE
     Route: 065
  95. BUDESONIDE [Suspect]
     Active Substance: BUDESONIDE
     Route: 065
  96. BUDESONIDE [Suspect]
     Active Substance: BUDESONIDE
     Route: 065
  97. BUDESONIDE [Suspect]
     Active Substance: BUDESONIDE
     Route: 065
  98. BUDESONIDE [Suspect]
     Active Substance: BUDESONIDE
     Route: 065
  99. BUDESONIDE [Suspect]
     Active Substance: BUDESONIDE
     Route: 065
  100. BUDESONIDE [Suspect]
     Active Substance: BUDESONIDE
     Route: 065
  101. BUDESONIDE [Suspect]
     Active Substance: BUDESONIDE
     Route: 065
  102. BUDESONIDE [Suspect]
     Active Substance: BUDESONIDE
     Route: 065
  103. BUDESONIDE [Suspect]
     Active Substance: BUDESONIDE
     Route: 065
  104. BUDESONIDE [Suspect]
     Active Substance: BUDESONIDE
     Route: 065
  105. BUDESONIDE [Suspect]
     Active Substance: BUDESONIDE
     Route: 065
  106. BUDESONIDE [Suspect]
     Active Substance: BUDESONIDE
     Route: 065
  107. BUDESONIDE [Suspect]
     Active Substance: BUDESONIDE
     Route: 065
  108. BUDESONIDE [Suspect]
     Active Substance: BUDESONIDE
     Route: 065
  109. BUDESONIDE [Suspect]
     Active Substance: BUDESONIDE
     Route: 065
  110. BUDESONIDE [Suspect]
     Active Substance: BUDESONIDE
     Route: 065
  111. BUDESONIDE [Suspect]
     Active Substance: BUDESONIDE
     Route: 065
  112. BUDESONIDE [Suspect]
     Active Substance: BUDESONIDE
     Route: 065
  113. BUDESONIDE [Suspect]
     Active Substance: BUDESONIDE
     Route: 065
  114. BUDESONIDE [Suspect]
     Active Substance: BUDESONIDE
     Route: 065
  115. BUDESONIDE [Suspect]
     Active Substance: BUDESONIDE
     Route: 065
  116. BUDESONIDE [Suspect]
     Active Substance: BUDESONIDE
     Route: 065
  117. BUDESONIDE [Suspect]
     Active Substance: BUDESONIDE
     Route: 065
  118. BUDESONIDE [Suspect]
     Active Substance: BUDESONIDE
     Route: 065
  119. BUDESONIDE [Suspect]
     Active Substance: BUDESONIDE
     Route: 065
  120. BUDESONIDE [Suspect]
     Active Substance: BUDESONIDE
     Route: 065
  121. BUDESONIDE [Suspect]
     Active Substance: BUDESONIDE
     Route: 065
  122. BUDESONIDE [Suspect]
     Active Substance: BUDESONIDE
     Route: 065
  123. BUDESONIDE [Suspect]
     Active Substance: BUDESONIDE
     Route: 065
  124. BUDESONIDE [Suspect]
     Active Substance: BUDESONIDE
     Route: 065
  125. BUDESONIDE [Suspect]
     Active Substance: BUDESONIDE
     Route: 065
  126. BUDESONIDE [Suspect]
     Active Substance: BUDESONIDE
     Route: 065
  127. BUDESONIDE [Suspect]
     Active Substance: BUDESONIDE
     Route: 065
  128. BUDESONIDE [Suspect]
     Active Substance: BUDESONIDE
     Route: 065
  129. BUDESONIDE [Suspect]
     Active Substance: BUDESONIDE
     Route: 065
  130. BUDESONIDE [Suspect]
     Active Substance: BUDESONIDE
     Route: 065
  131. BUDESONIDE [Suspect]
     Active Substance: BUDESONIDE
     Route: 065
  132. BUDESONIDE [Suspect]
     Active Substance: BUDESONIDE
     Route: 065
  133. BUDESONIDE [Suspect]
     Active Substance: BUDESONIDE
     Route: 065
  134. BUDESONIDE [Suspect]
     Active Substance: BUDESONIDE
     Route: 065
  135. BUDESONIDE [Suspect]
     Active Substance: BUDESONIDE
     Route: 065
  136. BUDESONIDE [Suspect]
     Active Substance: BUDESONIDE
     Route: 065
  137. BUDESONIDE [Suspect]
     Active Substance: BUDESONIDE
     Route: 065
  138. BUDESONIDE [Suspect]
     Active Substance: BUDESONIDE
     Route: 065
  139. BUDESONIDE [Suspect]
     Active Substance: BUDESONIDE
     Route: 065
  140. BUDESONIDE [Suspect]
     Active Substance: BUDESONIDE
     Route: 065
  141. BUDESONIDE [Suspect]
     Active Substance: BUDESONIDE
     Route: 065
  142. BUDESONIDE [Suspect]
     Active Substance: BUDESONIDE
     Route: 065
  143. BUDESONIDE [Suspect]
     Active Substance: BUDESONIDE
     Route: 065
  144. BUDESONIDE [Suspect]
     Active Substance: BUDESONIDE
     Route: 065
  145. BUDESONIDE [Suspect]
     Active Substance: BUDESONIDE
     Route: 065
  146. BUDESONIDE [Suspect]
     Active Substance: BUDESONIDE
     Route: 065
  147. BUDESONIDE [Suspect]
     Active Substance: BUDESONIDE
     Route: 065
  148. BUDESONIDE [Suspect]
     Active Substance: BUDESONIDE
     Route: 065
  149. BUDESONIDE [Suspect]
     Active Substance: BUDESONIDE
     Route: 065
  150. BUDESONIDE [Suspect]
     Active Substance: BUDESONIDE
     Route: 065
  151. BUDESONIDE [Suspect]
     Active Substance: BUDESONIDE
     Route: 065
  152. LEVALBUTEROL [Suspect]
     Active Substance: LEVALBUTEROL
     Indication: Product used for unknown indication
     Route: 065
  153. MEPOLIZUMAB [Suspect]
     Active Substance: MEPOLIZUMAB
     Indication: Asthma
     Route: 065
  154. NUCALA [Suspect]
     Active Substance: MEPOLIZUMAB
     Indication: Asthma
     Route: 065

REACTIONS (17)
  - Pruritus [Unknown]
  - Asthma [Unknown]
  - Bronchopulmonary aspergillosis allergic [Unknown]
  - Chronic obstructive pulmonary disease [Unknown]
  - Drug ineffective [Unknown]
  - Dyspnoea [Unknown]
  - Factor V Leiden mutation [Unknown]
  - Loss of personal independence in daily activities [Unknown]
  - Multiple allergies [Unknown]
  - Therapeutic product effect incomplete [Unknown]
  - Acquired factor V deficiency [Unknown]
  - Coagulation factor V level abnormal [Unknown]
  - Congenital anomaly [Unknown]
  - Dry skin [Unknown]
  - Erythema [Unknown]
  - Hypertension [Unknown]
  - Off label use [Unknown]
